FAERS Safety Report 6264946-4 (Version None)
Quarter: 2009Q3

REPORT INFORMATION
  Report Type: 
  Country: None (occurrence: None)
  Receive Date: 20090709
  Receipt Date: 20090709
  Transmission Date: 20100115
  Serious: Yes (Other)
  Sender: FDA-Public Use
  Company Number: None

PATIENT
  Sex: Female
  Weight: 74.8435 kg

DRUGS (1)
  1. ACTONEL [Suspect]
     Indication: OSTEOPOROSIS
     Dosage: 150MG ONE QMO ORAL
     Route: 048
     Dates: start: 20090521

REACTIONS (4)
  - DYSPNOEA [None]
  - MICTURITION FREQUENCY DECREASED [None]
  - OEDEMA PERIPHERAL [None]
  - PALPITATIONS [None]
